FAERS Safety Report 21932100 (Version 3)
Quarter: 2023Q2

REPORT INFORMATION
  Report Type: Spontaneous
  Country: US (occurrence: US)
  Receive Date: 20230131
  Receipt Date: 20230410
  Transmission Date: 20230721
  Serious: Yes (Hospitalization, Other)
  Sender: FDA-Public Use
  Company Number: US-PFIZER INC-PV202200050161

PATIENT
  Age: 77 Year
  Sex: Female
  Weight: 52.16 kg

DRUGS (4)
  1. IBRANCE [Suspect]
     Active Substance: PALBOCICLIB
     Indication: Breast cancer female
     Dosage: TAKES IT THREE WEEKS ON AND OFF 7 DAYS AND IT IS 125MG
     Dates: start: 202106, end: 20221011
  2. IBRANCE [Suspect]
     Active Substance: PALBOCICLIB
     Dosage: TAKES IT THREE WEEKS ON AND OFF 7 DAYS AND IT IS 125MG
  3. LIPITOR [Concomitant]
     Active Substance: ATORVASTATIN CALCIUM
     Indication: Hypertension
     Dosage: UNK
  4. AMLODIPINE [Concomitant]
     Active Substance: AMLODIPINE BESYLATE
     Indication: Hypertension
     Dosage: UNK

REACTIONS (8)
  - Clostridium difficile infection [Recovered/Resolved]
  - Cataract [Unknown]
  - Pneumonia [Recovering/Resolving]
  - Dyspnoea [Not Recovered/Not Resolved]
  - Neoplasm progression [Unknown]
  - Illness [Unknown]
  - Urinary tract infection [Recovered/Resolved]
  - Fatigue [Unknown]

NARRATIVE: CASE EVENT DATE: 20221001
